FAERS Safety Report 15977634 (Version 1)
Quarter: 2019Q1

REPORT INFORMATION
  Report Type: Report from Study
  Country: BR (occurrence: BR)
  Receive Date: 20190218
  Receipt Date: 20190218
  Transmission Date: 20190418
  Serious: Yes (Death, Hospitalization, Other)
  Sender: FDA-Public Use
  Company Number: PHHY2019BR037517

PATIENT
  Age: 71 Year
  Sex: Male

DRUGS (1)
  1. DIOVAN [Suspect]
     Active Substance: VALSARTAN
     Indication: HYPERTENSION
     Dosage: 160 MG, UNK
     Route: 048

REACTIONS (3)
  - Death [Fatal]
  - Nosocomial infection [Unknown]
  - Dementia Alzheimer^s type [Unknown]

NARRATIVE: CASE EVENT DATE: 20140328
